FAERS Safety Report 11912790 (Version 1)
Quarter: 2016Q1

REPORT INFORMATION
  Report Type: Report from Study
  Country: US (occurrence: US)
  Receive Date: 20160113
  Receipt Date: 20160113
  Transmission Date: 20160526
  Serious: Yes (Other)
  Sender: FDA-Public Use
  Company Number: US-BRISTOL-MYERS SQUIBB COMPANY-10856854

PATIENT
  Age: 30 Year
  Sex: Female

DRUGS (3)
  1. EPIVIR [Suspect]
     Active Substance: LAMIVUDINE
     Indication: ASYMPTOMATIC HIV INFECTION
     Dosage: 300 MG, QD
     Route: 048
     Dates: start: 19970611
  2. VIRACEPT [Suspect]
     Active Substance: NELFINAVIR MESYLATE
     Indication: ASYMPTOMATIC HIV INFECTION
     Dosage: THERAPY INITIATED PRIOR TO CONCEPTION AND ONGOING.
     Route: 048
     Dates: start: 19970611
  3. STAVUDINE. [Suspect]
     Active Substance: STAVUDINE
     Indication: ASYMPTOMATIC HIV INFECTION
     Dosage: 80 MG, QD
     Route: 048
     Dates: start: 19970611

REACTIONS (2)
  - Pregnancy [Recovered/Resolved]
  - Abortion induced [Unknown]

NARRATIVE: CASE EVENT DATE: 20000106
